FAERS Safety Report 23755098 (Version 1)
Quarter: 2024Q2

REPORT INFORMATION
  Report Type: Spontaneous
  Country: RO (occurrence: None)
  Receive Date: 20240418
  Receipt Date: 20240418
  Transmission Date: 20240715
  Serious: Yes (Other)
  Sender: FDA-Public Use
  Company Number: RO-ROCHE-3544568

PATIENT
  Age: 60 Year
  Sex: Female

DRUGS (1)
  1. ATEZOLIZUMAB [Suspect]
     Active Substance: ATEZOLIZUMAB
     Indication: Product used for unknown indication
     Route: 041
     Dates: start: 202303

REACTIONS (4)
  - Bronchitis [Unknown]
  - Bronchial neoplasm [Unknown]
  - Lymphadenopathy [Unknown]
  - Pleural neoplasm [Unknown]

NARRATIVE: CASE EVENT DATE: 20230601
